FAERS Safety Report 7465006-7 (Version None)
Quarter: 2011Q2

REPORT INFORMATION
  Report Type: 
  Country: None (occurrence: None)
  Receive Date: 20110509
  Receipt Date: 20110425
  Transmission Date: 20111010
  Serious: Yes (Hospitalization, Other)
  Sender: FDA-Public Use
  Company Number: JP-CELGENEUS-TAJPN-10-0702

PATIENT
  Sex: Female
  Weight: 54 kg

DRUGS (4)
  1. FLUID [Concomitant]
     Route: 051
     Dates: start: 20101223
  2. ABRAXANE [Suspect]
     Dosage: 370 MILLIGRAM
     Route: 050
     Dates: start: 20101125, end: 20101125
  3. ABRAXANE [Suspect]
     Dosage: 370 MILLIGRAM
     Route: 050
     Dates: start: 20101216, end: 20101216
  4. ABRAXANE [Suspect]
     Indication: BREAST CANCER METASTATIC
     Dosage: 370 MILLIGRAM
     Route: 050
     Dates: start: 20101104, end: 20101104

REACTIONS (6)
  - PLATELET COUNT DECREASED [None]
  - NEUTROPHIL COUNT DECREASED [None]
  - RENAL IMPAIRMENT [None]
  - WHITE BLOOD CELL COUNT DECREASED [None]
  - HEPATIC FUNCTION ABNORMAL [None]
  - BLOOD BILIRUBIN INCREASED [None]
